FAERS Safety Report 7529207-1 (Version None)
Quarter: 2011Q2

REPORT INFORMATION
  Report Type: 
  Country: None (occurrence: None)
  Receive Date: 20110607
  Receipt Date: 20050427
  Transmission Date: 20111010
  Serious: Yes (Death)
  Sender: FDA-Public Use
  Company Number: PHHO2005CA01784

PATIENT
  Sex: Male

DRUGS (5)
  1. ENTACAPONE [Concomitant]
  2. CLOZARIL [Suspect]
     Indication: PSYCHOTIC DISORDER
     Route: 048
     Dates: start: 20040202
  3. AMITRIPTYLINE HCL [Concomitant]
  4. PYRIDOXINE [Concomitant]
  5. CARBIDOPA + LEVODOPA [Concomitant]

REACTIONS (1)
  - MYOCARDIAL INFARCTION [None]
